FAERS Safety Report 10552602 (Version 1)
Quarter: 2014Q4

REPORT INFORMATION
  Report Type: Spontaneous
  Country: DE (occurrence: DE)
  Receive Date: 20141029
  Receipt Date: 20141029
  Transmission Date: 20150529
  Serious: Yes (Hospitalization)
  Sender: FDA-Public Use
  Company Number: DE-TEVA-516285GER

PATIENT
  Age: 16 Year
  Sex: Female
  Weight: 54 kg

DRUGS (2)
  1. CEFUROXIM [Suspect]
     Active Substance: CEFUROXIME
     Indication: PNEUMONIA
     Dosage: 750 MILLIGRAM DAILY;
     Route: 048
     Dates: start: 20140917
  2. CEFUROXIM [Suspect]
     Active Substance: CEFUROXIME
     Indication: BRONCHITIS

REACTIONS (3)
  - Dyspnoea [Recovered/Resolved]
  - Flushing [Recovered/Resolved]
  - Lip swelling [Recovered/Resolved]

NARRATIVE: CASE EVENT DATE: 20140917
